FAERS Safety Report 21732513 (Version 1)
Quarter: 2022Q4

REPORT INFORMATION
  Report Type: Report from Study
  Country: US (occurrence: US)
  Receive Date: 20221215
  Receipt Date: 20221215
  Transmission Date: 20230113
  Serious: Yes (Other)
  Sender: FDA-Public Use
  Company Number: US-ABBVIE-4237423

PATIENT
  Sex: Female

DRUGS (2)
  1. HUMIRA [Suspect]
     Active Substance: ADALIMUMAB
     Indication: Product used for unknown indication
     Dosage: CITRATE FREE STRENGTH - 40 MG
     Route: 058
  2. HUMIRA [Suspect]
     Active Substance: ADALIMUMAB
     Dosage: CITRATE FREE STRENGTH - 40 MG
     Route: 058

REACTIONS (5)
  - Multiple sclerosis [Unknown]
  - COVID-19 [Unknown]
  - Hypoaesthesia [Unknown]
  - Therapeutic product effect incomplete [Not Recovered/Not Resolved]
  - Neuralgia [Unknown]
